FAERS Safety Report 11902866 (Version 3)
Quarter: 2016Q1

REPORT INFORMATION
  Report Type: Report from Study
  Country: US (occurrence: US)
  Receive Date: 20160108
  Receipt Date: 20160218
  Transmission Date: 20160526
  Serious: Yes (Other)
  Sender: FDA-Public Use
  Company Number: US-MEDTRONIC-1046301

PATIENT
  Age: 60 Year
  Sex: Female

DRUGS (6)
  1. MORPHINE SULFATE. [Suspect]
     Active Substance: MORPHINE SULFATE
  2. CLONIDINE. [Suspect]
     Active Substance: CLONIDINE
  3. COMPOUNDED BACLOFEN INTRATHECAL 350 MCG/ML [Suspect]
     Active Substance: BACLOFEN
     Indication: PAIN
     Route: 037
  4. HYDROMORPHONE HCL [Suspect]
     Active Substance: HYDROMORPHONE HYDROCHLORIDE
  5. BUPIVACAINE HCL [Suspect]
     Active Substance: BUPIVACAINE HYDROCHLORIDE
  6. DILAUDID [Suspect]
     Active Substance: HYDROMORPHONE HYDROCHLORIDE
     Route: 048

REACTIONS (7)
  - Hypoaesthesia [Recovered/Resolved]
  - Cognitive disorder [Unknown]
  - Mental status changes [Unknown]
  - Constipation [Unknown]
  - Adverse drug reaction [Unknown]
  - Therapeutic response decreased [Recovered/Resolved]
  - Implant site haematoma [Recovered/Resolved]

NARRATIVE: CASE EVENT DATE: 20140619
